FAERS Safety Report 8732997 (Version 1)
Quarter: 2012Q4

REPORT INFORMATION
  Report Type: 
  Country: US (occurrence: US)
  Receive Date: 20120829
  Receipt Date: 20120829
  Transmission Date: 20130627
  Serious: Yes (Hospitalization)
  Sender: FDA-Public Use
  Company Number: US-ROCHE-1101682

PATIENT
  Sex: Female

DRUGS (1)
  1. ACTEMRA [Suspect]
     Indication: RHEUMATOID ARTHRITIS
     Route: 042

REACTIONS (13)
  - Cerebrovascular accident [Unknown]
  - Paralysis [Unknown]
  - Convulsion [Unknown]
  - Aphasia [Unknown]
  - Gait disturbance [Unknown]
  - Fall [Unknown]
  - Microangiopathy [Unknown]
  - Confusional state [Recovering/Resolving]
  - Weight decreased [Unknown]
  - Nervous system disorder [Unknown]
  - Oxygen saturation decreased [Unknown]
  - Blood cholesterol increased [Unknown]
  - Amnesia [Recovering/Resolving]
